FAERS Safety Report 4430208-0 (Version None)
Quarter: 2004Q3

REPORT INFORMATION
  Report Type: 
  Country: None (occurrence: None)
  Receive Date: 20040817
  Receipt Date: 20040804
  Transmission Date: 20050211
  Serious: Yes (Other)
  Sender: FDA-Public Use
  Company Number: 2004051783

PATIENT
  Age: 90 Year
  Sex: Female
  Weight: 42 kg

DRUGS (5)
  1. UNASYN [Suspect]
     Indication: PNEUMONIA
     Dosage: INTRAVENOUS
     Route: 042
     Dates: start: 20040710, end: 20040715
  2. PRODIF (FOSFLUCONAZOLE) [Suspect]
     Indication: PNEUMONIA
     Dosage: 252.3 MG (252.3 MG, 1 IN 1 D), INTRAVENOUS
     Route: 042
     Dates: start: 20040717, end: 20040726
  3. MEROPENEM (MEROPENEM) [Suspect]
     Indication: PNEUMONIA
     Dosage: 1000 MG (500 MG, 2 IN 1 D), INTRAVENOUS
     Route: 042
     Dates: start: 20040717, end: 20040726
  4. CEFOZOPRAN HYDROCHLORIDE (CEFOZOPRAN HYDROCHLORIDE) [Concomitant]
  5. CLINDAMYCIN HCL [Concomitant]

REACTIONS (4)
  - BLOOD POTASSIUM DECREASED [None]
  - DRUG INEFFECTIVE [None]
  - HYPERKALAEMIA [None]
  - THERAPY NON-RESPONDER [None]
